FAERS Safety Report 10478379 (Version 1)
Quarter: 2014Q3

REPORT INFORMATION
  Report Type: Spontaneous
  Country: US (occurrence: None)
  Receive Date: 20140924
  Receipt Date: 20140924
  Transmission Date: 20150326
  Serious: Yes (Other)
  Sender: FDA-Public Use
  Company Number: None

PATIENT
  Age: 34 Year
  Sex: Female
  Weight: 90.72 kg

DRUGS (1)
  1. CEDEFINIR [Suspect]
     Active Substance: CEFDINIR
     Indication: SINUSITIS
     Dosage: 1 PILL
     Route: 048
     Dates: start: 20140806, end: 20140807

REACTIONS (10)
  - Thirst [None]
  - Dry eye [None]
  - Feeling abnormal [None]
  - Paraesthesia [None]
  - Nasal dryness [None]
  - Dry skin [None]
  - Dry mouth [None]
  - Tongue dry [None]
  - Dysgeusia [None]
  - Tremor [None]

NARRATIVE: CASE EVENT DATE: 20140806
